FAERS Safety Report 16030468 (Version 1)
Quarter: 2019Q1

REPORT INFORMATION
  Report Type: Spontaneous
  Country: AT (occurrence: AT)
  Receive Date: 20190304
  Receipt Date: 20190304
  Transmission Date: 20190418
  Serious: Yes (Death, Hospitalization)
  Sender: FDA-Public Use
  Company Number: AT-AMNEAL PHARMACEUTICALS-2019AMN00233

PATIENT
  Age: 78 Year
  Sex: Female

DRUGS (2)
  1. METFORMIN HYDROCHLORIDE. [Suspect]
     Active Substance: METFORMIN HYDROCHLORIDE
     Indication: PRODUCT USED FOR UNKNOWN INDICATION
     Dosage: 850 MG, 2X/DAY, BID
     Route: 065
  2. INSULIN [Concomitant]
     Active Substance: INSULIN NOS
     Indication: PRODUCT USED FOR UNKNOWN INDICATION
     Dosage: BIPHASIC INSULIN ASPART B.I. D. (16?0?12 IU)

REACTIONS (3)
  - Lactic acidosis [Unknown]
  - Pneumonia [Fatal]
  - Euglycaemic diabetic ketoacidosis [Unknown]
